FAERS Safety Report 17410552 (Version 2)
Quarter: 2020Q1

REPORT INFORMATION
  Report Type: Report from Study
  Country: US (occurrence: US)
  Receive Date: 20200212
  Receipt Date: 20200303
  Transmission Date: 20200409
  Serious: Yes (Hospitalization)
  Sender: FDA-Public Use
  Company Number: US-ACTELION-A-US2020-201573

PATIENT
  Sex: Female
  Weight: 166.89 kg

DRUGS (5)
  1. UPTRAVI [Suspect]
     Active Substance: SELEXIPAG
     Dosage: 400 MCG, BID
     Route: 048
  2. ADEMPAS [Concomitant]
     Active Substance: RIOCIGUAT
  3. UPTRAVI [Suspect]
     Active Substance: SELEXIPAG
     Dosage: 600 MCG, BID
     Route: 048
  4. ELIQUIS [Concomitant]
     Active Substance: APIXABAN
  5. UPTRAVI [Suspect]
     Active Substance: SELEXIPAG
     Indication: PULMONARY HYPERTENSION
     Dosage: 200 MCG, BID
     Route: 048

REACTIONS (10)
  - Ankylosing spondylitis [Unknown]
  - Headache [Unknown]
  - Psoriatic arthropathy [Unknown]
  - Fluid overload [Unknown]
  - Condition aggravated [Unknown]
  - Hepatomegaly [Unknown]
  - Blood potassium decreased [Unknown]
  - Diarrhoea [Unknown]
  - Pain [Unknown]
  - Flatulence [Unknown]
